FAERS Safety Report 8023530 (Version 6)
Quarter: 2013Q3

REPORT INFORMATION
  Report Type: Report from Study
  Country: MY (occurrence: MY)
  Receive Date: 20110706
  Receipt Date: 20130923
  Transmission Date: 20140515
  Serious: Yes (Hospitalization)
  Sender: FDA-Public Use
  Company Number: MY-AMGEN-MYSCT2011017022

PATIENT
  Age: 42 Year
  Sex: Female
  Weight: 34.6 kg

DRUGS (8)
  1. PANITUMUMAB [Suspect]
     Indication: COLORECTAL CANCER METASTATIC
     Dosage: 115 MG, UNK
     Route: 065
     Dates: start: 20100702
  2. AQUEOUS [Concomitant]
     Indication: DRY SKIN
     Dosage: UNK
     Route: 061
     Dates: start: 20100716
  3. CELEBREX [Concomitant]
     Indication: PAIN
     Dosage: UNK
     Route: 048
     Dates: start: 20100205
  4. OXYCONTIN [Concomitant]
     Indication: PAIN
     Dosage: UNK
     Route: 048
     Dates: start: 20100622
  5. PIRITON [Concomitant]
     Indication: PRURITUS
     Dosage: UNK
     Route: 048
     Dates: start: 20100924
  6. DOXYCYCLINE [Concomitant]
     Indication: NAIL TOXICITY
     Dosage: UNK
     Route: 048
     Dates: start: 20100827, end: 20110225
  7. LORAZEPAM [Concomitant]
     Indication: INSOMNIA
     Dosage: UNK
     Route: 048
     Dates: start: 20101004
  8. OLIVE OIL [Concomitant]
     Indication: DRY SKIN
     Dosage: UNK
     Route: 061
     Dates: start: 20100730

REACTIONS (1)
  - Haemoglobin decreased [Recovered/Resolved]
